FAERS Safety Report 5862917-0 (Version None)
Quarter: 2008Q3

REPORT INFORMATION
  Report Type: 
  Country: None (occurrence: None)
  Receive Date: 20080828
  Receipt Date: 20080822
  Transmission Date: 20090109
  Serious: Yes (Death)
  Sender: FDA-Public Use
  Company Number: A0744782A

PATIENT
  Age: 77 Year
  Sex: Female

DRUGS (4)
  1. SERETIDE [Suspect]
     Indication: CHRONIC OBSTRUCTIVE PULMONARY DISEASE
     Route: 055
  2. DIGOXIN [Concomitant]
  3. MEMANTINE HCL [Concomitant]
  4. SALICYLIC ACID [Concomitant]

REACTIONS (1)
  - DEATH [None]
